FAERS Safety Report 5423905-1 (Version None)
Quarter: 2007Q3

REPORT INFORMATION
  Report Type: 
  Country: None (occurrence: None)
  Receive Date: 20070823
  Receipt Date: 20070815
  Transmission Date: 20080115
  Serious: Yes (Other)
  Sender: FDA-Public Use
  Company Number: AU-ASTRAZENECA-2007AP05017

PATIENT
  Age: 81 Year
  Sex: Female

DRUGS (5)
  1. TAMOXIFEN CITRATE [Suspect]
     Dosage: DISCONTINUED 15 MONTHS AGO
     Route: 048
  2. TRITACE [Concomitant]
     Indication: BLOOD PRESSURE INCREASED
  3. ZOCOR [Concomitant]
     Indication: BLOOD CHOLESTEROL INCREASED
  4. FOSAMAX [Concomitant]
  5. NOLVADEX [Concomitant]
     Route: 048
     Dates: end: 20050101

REACTIONS (2)
  - UTERINE ENLARGEMENT [None]
  - VAGINAL HAEMORRHAGE [None]
